FAERS Safety Report 7803170-8 (Version None)
Quarter: 2011Q4

REPORT INFORMATION
  Report Type: 
  Country: None (occurrence: None)
  Receive Date: 20111007
  Receipt Date: 20110930
  Transmission Date: 20120403
  Serious: Yes (Hospitalization)
  Sender: FDA-Public Use
  Company Number: JP-AMGEN-JPNCT2010009639

PATIENT
  Age: 75 Year
  Sex: Male
  Weight: 65 kg

DRUGS (18)
  1. RABEPRAZOLE SODIUM [Concomitant]
     Dosage: UNK
     Route: 048
  2. ADALAT [Concomitant]
     Dosage: UNK
     Route: 048
  3. METOPROLOL TARTRATE [Concomitant]
     Dosage: UNK
     Route: 048
  4. MEROPENEM [Concomitant]
     Route: 042
  5. PANITUMUMAB [Suspect]
     Indication: COLORECTAL CANCER
     Dosage: 6 MG/KG, Q2WK
     Route: 041
     Dates: start: 20100713, end: 20100713
  6. PENTAZOCINE LACTATE [Concomitant]
     Dosage: UNK
     Route: 048
  7. SOLDEM 1 [Concomitant]
     Dosage: UNK
     Route: 042
  8. CEFMETAZOLE [Concomitant]
     Route: 042
  9. FAMOTIDINE [Concomitant]
     Dosage: UNK
     Route: 042
  10. CALCIUM CARBONATE [Concomitant]
     Dosage: UNK
     Route: 042
  11. VITAMEDIN [Concomitant]
     Dosage: UNK
     Route: 042
  12. CEFAZOLIN SODIUM [Concomitant]
     Route: 042
  13. PANITUMUMAB [Suspect]
     Dosage: 6 MG/KG, Q2WK
     Route: 041
     Dates: start: 20101203, end: 20101217
  14. GASMOTIN [Concomitant]
     Dosage: UNK
     Route: 048
  15. HIRUDOID [Concomitant]
     Dosage: UNK
     Route: 062
  16. ENALAPRIL MALEATE [Concomitant]
     Dosage: UNK
     Route: 048
  17. FULMETA [Concomitant]
     Dosage: UNK
     Route: 062
  18. ACETAMINOPHEN [Concomitant]
     Dosage: UNK
     Route: 048

REACTIONS (6)
  - MALAISE [None]
  - COLORECTAL CANCER [None]
  - C-REACTIVE PROTEIN INCREASED [None]
  - DECREASED APPETITE [None]
  - URINARY TRACT INFECTION [None]
  - BLOOD POTASSIUM INCREASED [None]
